FAERS Safety Report 22033563 (Version 1)
Quarter: 2023Q1

REPORT INFORMATION
  Report Type: Report from Study
  Country: JP (occurrence: JP)
  Receive Date: 20230224
  Receipt Date: 20230224
  Transmission Date: 20230418
  Serious: Yes (Death, Hospitalization)
  Sender: FDA-Public Use
  Company Number: JP-TAKEDA-2022TJP070868

PATIENT

DRUGS (15)
  1. CABOZANTINIB [Suspect]
     Active Substance: CABOZANTINIB
     Indication: Colon cancer
     Dosage: 60 MG, QD
     Route: 065
     Dates: start: 20220804, end: 20220820
  2. CABOZANTINIB [Suspect]
     Active Substance: CABOZANTINIB
     Indication: Metastases to liver
     Dosage: UNK
  3. CABOZANTINIB [Suspect]
     Active Substance: CABOZANTINIB
     Indication: Metastases to lymph nodes
     Dosage: UNK
  4. CABOZANTINIB [Suspect]
     Active Substance: CABOZANTINIB
     Indication: Metastases to peritoneum
     Dosage: UNK
  5. PANITUMUMAB [Suspect]
     Active Substance: PANITUMUMAB
     Indication: Metastases to liver
     Dosage: 334.8 MILLIGRAM, Q2WEEKS
     Route: 041
     Dates: start: 20220804, end: 20220818
  6. PANITUMUMAB [Suspect]
     Active Substance: PANITUMUMAB
     Indication: Colon cancer
     Dosage: UNK
  7. PANITUMUMAB [Suspect]
     Active Substance: PANITUMUMAB
     Indication: Metastases to lymph nodes
     Dosage: UNK
  8. PANITUMUMAB [Suspect]
     Active Substance: PANITUMUMAB
     Indication: Metastases to peritoneum
     Dosage: UNK
  9. FEBUXOSTAT [Concomitant]
     Active Substance: FEBUXOSTAT
     Indication: Hyperuricaemia
     Dosage: 60 MILLIGRAM, QD
     Route: 048
     Dates: start: 20220728, end: 20220820
  10. MINOCYCLINE HYDROCHLORIDE [Concomitant]
     Active Substance: MINOCYCLINE HYDROCHLORIDE
     Indication: Skin disorder prophylaxis
     Dosage: 100 MILLIGRAM, BID
     Route: 048
     Dates: start: 20220804, end: 20220820
  11. GLYCOSAMINOGLYCANS [Concomitant]
     Active Substance: GLYCOSAMINOGLYCANS
     Indication: Skin disorder prophylaxis
     Dosage: UNK
     Route: 062
     Dates: start: 20220804, end: 20220820
  12. MAGNESIUM OXIDE [Concomitant]
     Active Substance: MAGNESIUM OXIDE
     Indication: Constipation
     Dosage: 500 MILLIGRAM, BID
     Route: 048
     Dates: start: 20220810, end: 20220820
  13. LINZESS [Concomitant]
     Active Substance: LINACLOTIDE
     Indication: Constipation
     Dosage: 0.25 MILLIGRAM, QD
     Route: 048
     Dates: start: 20220810, end: 20220820
  14. ENSURE [Concomitant]
     Active Substance: AMINO ACIDS\DEXTROSE\ELECTROLYTES NOS\SOYBEAN OIL\VITAMINS
     Indication: Decreased appetite
     Dosage: 250 MILLILITER, BID
     Route: 048
     Dates: start: 20220818, end: 20220820
  15. OLMESARTAN MEDOXOMIL [Concomitant]
     Active Substance: OLMESARTAN MEDOXOMIL
     Indication: Hypertension
     Dosage: 10 MILLIGRAM, QD
     Route: 048
     Dates: start: 20220819, end: 20220820

REACTIONS (1)
  - Cardiac failure acute [Fatal]

NARRATIVE: CASE EVENT DATE: 20220821
